FAERS Safety Report 16689442 (Version 1)
Quarter: 2019Q3

REPORT INFORMATION
  Report Type: Spontaneous
  Country: US (occurrence: US)
  Receive Date: 20190809
  Receipt Date: 20190809
  Transmission Date: 20191004
  Serious: No
  Sender: FDA-Public Use
  Company Number: US-ASTRAZENECA-2019SF04776

PATIENT
  Sex: Female

DRUGS (1)
  1. EXENATIDE. [Suspect]
     Active Substance: EXENATIDE
     Route: 065

REACTIONS (4)
  - Nasopharyngitis [Unknown]
  - Sinusitis [Unknown]
  - Device leakage [Unknown]
  - Malaise [Unknown]
